FAERS Safety Report 9934984 (Version 2)
Quarter: 2014Q2

REPORT INFORMATION
  Report Type: Spontaneous
  Country: US (occurrence: DE)
  Receive Date: 20140228
  Receipt Date: 20140407
  Transmission Date: 20141212
  Serious: No
  Sender: FDA-Public Use
  Company Number: DE-FRI-1000054757

PATIENT
  Sex: Female

DRUGS (4)
  1. LINACLOTIDE [Suspect]
     Indication: CONSTIPATION
     Dosage: 1 DF WHEN NEEDED
     Dates: start: 201306
  2. OMEPRAZOL [Concomitant]
  3. L-THYROXINE [Concomitant]
  4. MINERALS NOS [Concomitant]

REACTIONS (3)
  - Off label use [Not Recovered/Not Resolved]
  - Intentional product misuse [Not Recovered/Not Resolved]
  - Diarrhoea [Not Recovered/Not Resolved]
